FAERS Safety Report 7275890-8 (Version None)
Quarter: 2011Q1

REPORT INFORMATION
  Report Type: 
  Country: None (occurrence: None)
  Receive Date: 20110204
  Receipt Date: 20110201
  Transmission Date: 20110831
  Serious: Yes (Death, Hospitalization)
  Sender: FDA-Public Use
  Company Number: A0788334A

PATIENT
  Age: 83 Year
  Sex: Female
  Weight: 49.1 kg

DRUGS (1)
  1. AVANDIA [Suspect]
     Indication: TYPE 2 DIABETES MELLITUS
     Dosage: 4MG PER DAY
     Route: 048
     Dates: start: 20020101, end: 20040920

REACTIONS (3)
  - DEATH [None]
  - CEREBROVASCULAR ACCIDENT [None]
  - PARALYSIS [None]
